FAERS Safety Report 12396843 (Version 2)
Quarter: 2016Q3

REPORT INFORMATION
  Report Type: Spontaneous
  Country: CO (occurrence: CO)
  Receive Date: 20160524
  Receipt Date: 20160704
  Transmission Date: 20161109
  Serious: Yes (Other)
  Sender: FDA-Public Use
  Company Number: CO-AMGEN-COLSP2016064778

PATIENT
  Age: 49 Year
  Sex: Female

DRUGS (2)
  1. ENBREL [Suspect]
     Active Substance: ETANERCEPT
     Dosage: 50 MG, WEEKLY
     Route: 058
     Dates: start: 20160508, end: 20160615
  2. ENBREL [Suspect]
     Active Substance: ETANERCEPT
     Indication: ANKYLOSING SPONDYLITIS
     Dosage: 50 MG, WEEKLY
     Route: 058
     Dates: start: 20160508

REACTIONS (10)
  - Tachycardia [Recovering/Resolving]
  - Oral mucosal blistering [Recovering/Resolving]
  - Condition aggravated [Recovering/Resolving]
  - Influenza [Recovering/Resolving]
  - Diarrhoea [Recovering/Resolving]
  - Asthma [Recovering/Resolving]
  - Haematemesis [Recovering/Resolving]
  - Hypersensitivity [Recovering/Resolving]
  - Decreased immune responsiveness [Not Recovered/Not Resolved]
  - Mobility decreased [Recovered/Resolved]

NARRATIVE: CASE EVENT DATE: 20160508
